FAERS Safety Report 10600661 (Version 1)
Quarter: 2014Q4

REPORT INFORMATION
  Report Type: Spontaneous
  Country: US (occurrence: None)
  Receive Date: 20141121
  Receipt Date: 20141121
  Transmission Date: 20150529
  Serious: Yes (Hospitalization)
  Sender: FDA-Public Use
  Company Number: None

PATIENT
  Age: 59 Year
  Sex: Female
  Weight: 77 kg

DRUGS (2)
  1. LITHIUM CARBONATE. [Suspect]
     Active Substance: LITHIUM CARBONATE
     Indication: DEPRESSION
     Route: 048
  2. LITHIUM CARBONATE. [Suspect]
     Active Substance: LITHIUM CARBONATE
     Indication: INAPPROPRIATE AFFECT
     Route: 048

REACTIONS (6)
  - Mental status changes [None]
  - Decreased appetite [None]
  - Toxicity to various agents [None]
  - Confusional state [None]
  - Nephrogenic diabetes insipidus [None]
  - Renal failure [None]

NARRATIVE: CASE EVENT DATE: 20141010
